FAERS Safety Report 21057086 (Version 1)
Quarter: 2022Q3

REPORT INFORMATION
  Report Type: Spontaneous
  Country: US (occurrence: None)
  Receive Date: 20220707
  Receipt Date: 20220707
  Transmission Date: 20221027
  Serious: No
  Sender: FDA-Public Use
  Company Number: None

PATIENT
  Age: 1 Year
  Sex: Male
  Weight: 13.5 kg

DRUGS (1)
  1. BABY BUM SPF 50 MINERAL SUNSCREEN FACE STICK [Suspect]
     Active Substance: ZINC OXIDE
     Indication: Prophylaxis against solar radiation
     Dosage: OTHER STRENGTH : FACE STICK;?OTHER QUANTITY : .45 OUNCE(S);?FREQUENCY : EVERY 2 HOURS;?
     Route: 061
     Dates: start: 20220612, end: 20220612

REACTIONS (2)
  - Application site pain [None]
  - Application site erythema [None]

NARRATIVE: CASE EVENT DATE: 20220612
